FAERS Safety Report 10172808 (Version 1)
Quarter: 2014Q2

REPORT INFORMATION
  Report Type: Spontaneous
  Country: US (occurrence: US)
  Receive Date: 20140515
  Receipt Date: 20140515
  Transmission Date: 20141212
  Serious: Yes (Other)
  Sender: FDA-Public Use
  Company Number: US-ROCHE-1400638

PATIENT
  Sex: Female

DRUGS (6)
  1. RITUXAN [Suspect]
     Indication: B-CELL LYMPHOMA
     Dosage: 375 MG PER M2, FOR 2 YEARS
     Route: 065
     Dates: end: 20140129
  2. RITUXAN [Suspect]
     Dosage: 375 MG MER M2 WITH R-CHOP
     Route: 065
     Dates: start: 20140512
  3. CYCLOPHOSPHAMIDE [Concomitant]
     Indication: B-CELL LYMPHOMA
  4. DOXORUBICIN [Concomitant]
     Indication: B-CELL LYMPHOMA
  5. VINCRISTINE [Concomitant]
     Indication: B-CELL LYMPHOMA
  6. PREDNISOLONE [Concomitant]
     Indication: B-CELL LYMPHOMA

REACTIONS (1)
  - B-cell lymphoma [Unknown]
